FAERS Safety Report 18825927 (Version 5)
Quarter: 2025Q1

REPORT INFORMATION
  Report Type: Report from Study
  Country: US (occurrence: US)
  Receive Date: 20210202
  Receipt Date: 20250217
  Transmission Date: 20250409
  Serious: Yes (Other)
  Sender: BIOGEN
  Company Number: US-BIOGEN-2021BI00972753

PATIENT
  Sex: Female

DRUGS (3)
  1. TYSABRI [Suspect]
     Active Substance: NATALIZUMAB
     Indication: Multiple sclerosis
     Route: 050
  2. TYSABRI [Suspect]
     Active Substance: NATALIZUMAB
     Route: 050
  3. TYSABRI [Suspect]
     Active Substance: NATALIZUMAB
     Route: 050
     Dates: start: 20150520, end: 20210303

REACTIONS (26)
  - Generalised tonic-clonic seizure [Unknown]
  - Drug abuse [Recovered/Resolved]
  - Memory impairment [Not Recovered/Not Resolved]
  - Seasonal affective disorder [Not Recovered/Not Resolved]
  - Stress [Not Recovered/Not Resolved]
  - Speech disorder [Not Recovered/Not Resolved]
  - Superficial injury of eye [Recovered/Resolved]
  - Optic atrophy [Not Recovered/Not Resolved]
  - Temperature intolerance [Not Recovered/Not Resolved]
  - Musculoskeletal disorder [Not Recovered/Not Resolved]
  - Ligament sprain [Not Recovered/Not Resolved]
  - Central nervous system lesion [Not Recovered/Not Resolved]
  - Osteoarthritis [Unknown]
  - Fibromyalgia [Unknown]
  - Spinal stenosis [Unknown]
  - Erythema [Recovered/Resolved]
  - Pain [Not Recovered/Not Resolved]
  - Prescribed underdose [Not Recovered/Not Resolved]
  - Multiple sclerosis relapse [Not Recovered/Not Resolved]
  - Multiple sclerosis [Unknown]
  - Dysphonia [Unknown]
  - Depression [Not Recovered/Not Resolved]
  - Rash [Recovered/Resolved]
  - Pyrexia [Recovered/Resolved]
  - Pruritus [Recovered/Resolved]
  - Dizziness [Unknown]
